FAERS Safety Report 14018781 (Version 3)
Quarter: 2017Q4

REPORT INFORMATION
  Report Type: Spontaneous
  Country: US (occurrence: US)
  Receive Date: 20170928
  Receipt Date: 20171017
  Transmission Date: 20180321
  Serious: No
  Sender: FDA-Public Use
  Company Number: US-PFIZER INC-2017417454

PATIENT
  Age: 54 Year
  Sex: Male
  Weight: 92.53 kg

DRUGS (3)
  1. DILANTIN [Suspect]
     Active Substance: PHENYTOIN
     Indication: SEIZURE
     Dosage: 500 MG, DAILY (200MG IN MORNING AND 300MG LATER IN THE DAY )
  2. DILANTIN [Suspect]
     Active Substance: PHENYTOIN
     Indication: NERVOUS SYSTEM DISORDER
  3. KEPPRA [Concomitant]
     Active Substance: LEVETIRACETAM
     Indication: NERVOUS SYSTEM DISORDER
     Dosage: 500 MG, 2X/DAY

REACTIONS (2)
  - Somnolence [Not Recovered/Not Resolved]
  - Anticonvulsant drug level decreased [Unknown]
